FAERS Safety Report 4774517-4 (Version None)
Quarter: 2005Q3

REPORT INFORMATION
  Report Type: 
  Country: None (occurrence: None)
  Receive Date: 20050916
  Receipt Date: 20050524
  Transmission Date: 20060218
  Serious: Yes (Death)
  Sender: FDA-Public Use
  Company Number: ACC000046

PATIENT
  Sex: Female

DRUGS (5)
  1. HEPARIN SODIUM [Suspect]
     Indication: THERAPEUTIC PROCEDURE
     Dosage: 60 IU/KG; EVERY DAY
     Dates: start: 20041201, end: 20041201
  2. EPTIFIBATIDE [Suspect]
     Dosage: IV
     Route: 042
     Dates: start: 20041201, end: 20050101
  3. ENOXAPARIN SODIUM [Suspect]
     Indication: ACUTE MYOCARDIAL INFARCTION
     Dosage: SC
     Route: 058
     Dates: start: 20050101, end: 20050101
  4. CLOPIDOGREL [Suspect]
     Indication: ACUTE MYOCARDIAL INFARCTION
     Dosage: 75 MG; EVERY DAY
     Dates: start: 20050101, end: 20050101
  5. ASPIRIN [Suspect]
     Dates: start: 20050101, end: 20050101

REACTIONS (9)
  - CORONARY ARTERY DISEASE [None]
  - CORONARY ARTERY OCCLUSION [None]
  - CREATININE RENAL CLEARANCE DECREASED [None]
  - HAEMOGLOBIN DECREASED [None]
  - HAEMORRHAGE INTRACRANIAL [None]
  - MYOCARDIAL INFARCTION [None]
  - VASCULAR CALCIFICATION [None]
  - VASCULAR PROCEDURE COMPLICATION [None]
  - VOMITING [None]
